FAERS Safety Report 15486783 (Version 2)
Quarter: 2019Q2

REPORT INFORMATION
  Report Type: Other
  Country: DE (occurrence: DE)
  Receive Date: 20181011
  Receipt Date: 20190628
  Transmission Date: 20190711
  Serious: No
  Sender: FDA-Public Use
  Company Number: DE-LUPIN PHARMACEUTICALS INC.-2018-05322

PATIENT
  Age: 68 Year
  Sex: Female
  Weight: 60 kg

DRUGS (4)
  1. EZETIMIBE. [Suspect]
     Active Substance: EZETIMIBE
     Indication: CORONARY ARTERY DISEASE
     Dosage: UNK
     Route: 065
     Dates: start: 201802, end: 201803
  2. ATORVASTATIN [Suspect]
     Active Substance: ATORVASTATIN
     Indication: CORONARY ARTERY DISEASE
     Dosage: 10 MG, UNK
     Route: 065
     Dates: start: 201710, end: 201712
  3. FLUVASTATIN [Suspect]
     Active Substance: FLUVASTATIN SODIUM
     Indication: CORONARY ARTERY DISEASE
     Dosage: 20 MG, UNK
     Route: 065
     Dates: start: 201712, end: 201802
  4. SIMVASTATIN. [Suspect]
     Active Substance: SIMVASTATIN
     Indication: CORONARY ARTERY DISEASE
     Dosage: 20 MG, UNK
     Route: 065
     Dates: start: 201607, end: 201710

REACTIONS (1)
  - Myalgia [Not Recovered/Not Resolved]
